FAERS Safety Report 23440210 (Version 2)
Quarter: 2024Q1

REPORT INFORMATION
  Report Type: Report from Study
  Country: CA (occurrence: CA)
  Receive Date: 20240124
  Receipt Date: 20240226
  Transmission Date: 20240410
  Serious: Yes (Death, Other)
  Sender: FDA-Public Use
  Company Number: CA-ABBVIE-5599454

PATIENT
  Sex: Male

DRUGS (1)
  1. LUPRON DEPOT [Suspect]
     Active Substance: LEUPROLIDE ACETATE
     Indication: Prostate cancer
     Route: 030
     Dates: start: 20230425, end: 202311

REACTIONS (7)
  - Prostate cancer [Fatal]
  - Drug ineffective [Unknown]
  - Palliative care [Unknown]
  - Hypophagia [Unknown]
  - Hot flush [Unknown]
  - Headache [Unknown]
  - Hyperhidrosis [Unknown]
